FAERS Safety Report 23808702 (Version 1)
Quarter: 2024Q2

REPORT INFORMATION
  Report Type: Spontaneous
  Country: FR (occurrence: FR)
  Receive Date: 20240502
  Receipt Date: 20240502
  Transmission Date: 20240717
  Serious: Yes (Other)
  Sender: FDA-Public Use
  Company Number: None

PATIENT
  Age: 32 Year
  Sex: Female

DRUGS (4)
  1. VINCRISTINE [Suspect]
     Active Substance: VINCRISTINE
     Indication: Brain neoplasm
     Dosage: PROTOCOLE PCV : C1J8, C1J29, C2J8: VINCRISTINE (SULFATE)
     Route: 042
     Dates: start: 20231117, end: 20240109
  2. LOMUSTINE [Suspect]
     Active Substance: LOMUSTINE
     Indication: Brain neoplasm
     Dosage: TIME INTERVAL: CYCLICAL: PCV PROTOCOL; C1 ON 09/11/23, C2 ON 02/01/24
     Route: 048
     Dates: start: 20231109, end: 20240102
  3. PROCARBAZINE [Suspect]
     Active Substance: PROCARBAZINE
     Indication: Brain neoplasm
     Dosage: PCV PROTOCOL; C1D8 TO D21, C2D8 TO D21
     Route: 048
     Dates: start: 20231117, end: 20240121
  4. KEPPRA [Suspect]
     Active Substance: LEVETIRACETAM
     Indication: Epilepsy
     Dosage: 750 MG 2 TIMES A DAY
     Route: 048
     Dates: start: 202305

REACTIONS (2)
  - Cholestasis [Not Recovered/Not Resolved]
  - Hepatic cytolysis [Not Recovered/Not Resolved]

NARRATIVE: CASE EVENT DATE: 20240130
